FAERS Safety Report 10276178 (Version 1)
Quarter: 2014Q3

REPORT INFORMATION
  Report Type: Spontaneous
  Country: AU (occurrence: AU)
  Receive Date: 20140703
  Receipt Date: 20140703
  Transmission Date: 20150326
  Serious: Yes (Other)
  Sender: FDA-Public Use
  Company Number: AU-ELI_LILLY_AND_COMPANY-AU201407000745

PATIENT

DRUGS (2)
  1. TOBRAMYCIN SULFATE. [Suspect]
     Active Substance: TOBRAMYCIN SULFATE
     Indication: CYSTIC FIBROSIS
     Dosage: 10 MG/KG, QD
     Route: 042
  2. TOBRAMYCIN SULFATE. [Suspect]
     Active Substance: TOBRAMYCIN SULFATE
     Dosage: 300 MG, SINGLE
     Route: 042

REACTIONS (3)
  - Extra dose administered [Unknown]
  - Incorrect route of drug administration [Unknown]
  - Deafness neurosensory [Unknown]
